FAERS Safety Report 7099891-8 (Version None)
Quarter: 2010Q4

REPORT INFORMATION
  Report Type: 
  Country: None (occurrence: None)
  Receive Date: 20101112
  Receipt Date: 20101101
  Transmission Date: 20110411
  Serious: Yes (Death)
  Sender: FDA-Public Use
  Company Number: BE-ASTRAZENECA-2010SE53566

PATIENT
  Age: 33 Year
  Sex: Female

DRUGS (5)
  1. PROPOFOL [Suspect]
     Indication: SEDATIVE THERAPY
     Route: 042
  2. COLCHICINE [Suspect]
     Dosage: 20 MG
     Route: 048
  3. ATORVASTATIN [Suspect]
     Route: 048
  4. IBUPROFEN [Concomitant]
  5. DICLOFENAC SODIUM [Concomitant]

REACTIONS (1)
  - PROPOFOL INFUSION SYNDROME [None]
